FAERS Safety Report 4616800-9 (Version None)
Quarter: 2005Q2

REPORT INFORMATION
  Report Type: 
  Country: None (occurrence: None)
  Receive Date: 20050311
  Receipt Date: 20050202
  Transmission Date: 20051028
  Serious: Yes (Hospitalization)
  Sender: FDA-Public Use
  Company Number: 2005-00171

PATIENT
  Age: 70 Year
  Sex: Female
  Weight: 72.3 kg

DRUGS (12)
  1. VELCADE [Suspect]
     Indication: MULTIPLE MYELOMA
     Dosage: 1.00 MG, 2/WEEK
     Dates: start: 20050104, end: 20050107
  2. SCIO-469() [Suspect]
     Indication: MULTIPLE MYELOMA
     Dosage: 60.00 MG, TID
     Dates: start: 20041122, end: 20050111
  3. ALLOPURINOL [Concomitant]
  4. ZOMETA [Concomitant]
  5. LASIX [Concomitant]
  6. POTASSIUM CHLORIDE [Concomitant]
  7. MS CONTIN [Concomitant]
  8. PAXIL [Concomitant]
  9. SENNA (SENNA) [Concomitant]
  10. DULCOLAX [Concomitant]
  11. OXYCODONE (OXYCODONE) [Concomitant]
  12. COMPAZINE [Concomitant]

REACTIONS (5)
  - DISEASE PROGRESSION [None]
  - EPISTAXIS [None]
  - HYPERVISCOSITY SYNDROME [None]
  - MENTAL STATUS CHANGES [None]
  - THROMBOCYTOPENIA [None]
